FAERS Safety Report 6608352-9 (Version None)
Quarter: 2010Q1

REPORT INFORMATION
  Report Type: 
  Country: None (occurrence: None)
  Receive Date: 20100301
  Receipt Date: 20100222
  Transmission Date: 20100710
  Serious: Yes (Death, Life-Threatening)
  Sender: FDA-Public Use
  Company Number: US-BRACCO-004033

PATIENT
  Age: 68 Year
  Sex: Male
  Weight: 125 kg

DRUGS (10)
  1. ATROPINE [Concomitant]
     Route: 065
     Dates: start: 20100211, end: 20100211
  2. ATROPINE [Concomitant]
     Route: 065
     Dates: start: 20100211, end: 20100211
  3. ATROPINE [Concomitant]
     Route: 065
     Dates: start: 20100211, end: 20100211
  4. ISOVUE-128 [Suspect]
     Indication: CHEST X-RAY ABNORMAL
     Route: 042
     Dates: start: 20100211, end: 20100211
  5. ISOVUE-128 [Suspect]
     Indication: COMPUTERISED TOMOGRAM
     Route: 042
     Dates: start: 20100211, end: 20100211
  6. EPIPEN [Concomitant]
     Route: 042
     Dates: start: 20100211, end: 20100211
  7. EPINEPHRINE [Concomitant]
     Route: 065
     Dates: start: 20100211, end: 20100211
  8. EPINEPHRINE [Concomitant]
     Route: 065
     Dates: start: 20100211, end: 20100211
  9. EPINEPHRINE [Concomitant]
     Route: 065
     Dates: start: 20100211, end: 20100211
  10. OXYGEN [Concomitant]
     Route: 055
     Dates: start: 20100211, end: 20100211

REACTIONS (6)
  - CONVULSION [None]
  - CYANOSIS [None]
  - DYSPNOEA [None]
  - ELECTROMECHANICAL DISSOCIATION [None]
  - HYPOTONIA [None]
  - NAUSEA [None]
